FAERS Safety Report 6204107-8 (Version None)
Quarter: 2009Q2

REPORT INFORMATION
  Report Type: 
  Country: None (occurrence: None)
  Receive Date: 20090527
  Receipt Date: 20090521
  Transmission Date: 20091009
  Serious: Yes (Other)
  Sender: FDA-Public Use
  Company Number: US-PFIZER INC-2005132094

PATIENT
  Sex: Female

DRUGS (12)
  1. PROVERA [Suspect]
     Indication: HORMONE REPLACEMENT THERAPY
     Dosage: 2.5-5 MG, UNK
     Route: 065
     Dates: start: 19920101, end: 19960101
  2. PROVERA [Suspect]
     Indication: MENOPAUSAL SYMPTOMS
  3. MEDROXYPROGESTERONE ACETATE [Suspect]
     Indication: HORMONE REPLACEMENT THERAPY
     Dosage: 10 MG, UNK
     Dates: start: 19910101
  4. MEDROXYPROGESTERONE ACETATE [Suspect]
     Indication: MENOPAUSAL SYMPTOMS
  5. PREMARIN [Suspect]
     Indication: HORMONE REPLACEMENT THERAPY
     Dosage: 0.625 MG, UNK
     Route: 065
     Dates: start: 19910101, end: 19960101
  6. PREMARIN [Suspect]
     Indication: MENOPAUSAL SYMPTOMS
  7. PREMPRO [Suspect]
     Indication: HORMONE REPLACEMENT THERAPY
     Dosage: UNK
     Dates: start: 19960101, end: 20010101
  8. PREMPRO [Suspect]
     Indication: MENOPAUSAL SYMPTOMS
  9. SYNTHROID [Concomitant]
     Indication: HYPOTHYROIDISM
     Dosage: 0.075 MG - 0.88 UG, UNK
     Dates: start: 19960101
  10. FOSAMAX [Concomitant]
     Indication: OSTEOPOROSIS
     Dosage: 70 MG, UNK
     Dates: start: 19960101
  11. IMITREX [Concomitant]
     Indication: MIGRAINE
     Dosage: 50 MG, UNK
     Dates: start: 19960101
  12. DOXEPIN [Concomitant]
     Indication: SLEEP DISORDER
     Dosage: UNK
     Dates: start: 20000101

REACTIONS (1)
  - BREAST CANCER [None]
